FAERS Safety Report 19267985 (Version 1)
Quarter: 2021Q2

REPORT INFORMATION
  Report Type: Spontaneous
  Country: FR (occurrence: FR)
  Receive Date: 20210517
  Receipt Date: 20210517
  Transmission Date: 20210717
  Serious: Yes (Hospitalization, Other)
  Sender: FDA-Public Use
  Company Number: FR-SA-2021SA152254

PATIENT
  Age: 65 Year
  Sex: Female
  Weight: 41 kg

DRUGS (12)
  1. DOCETAXEL. [Suspect]
     Active Substance: DOCETAXEL
     Indication: SQUAMOUS CELL CARCINOMA
     Dosage: 54 MG, QD
     Route: 041
     Dates: start: 20210330, end: 20210330
  2. AKYNZEO [Suspect]
     Active Substance: NETUPITANT\PALONOSETRON HYDROCHLORIDE
     Indication: SQUAMOUS CELL CARCINOMA
     Dosage: 300 MG, QD
     Route: 048
     Dates: start: 20210330, end: 20210330
  3. FLUOROURACIL. [Suspect]
     Active Substance: FLUOROURACIL
     Indication: SQUAMOUS CELL CARCINOMA
     Dosage: 3250 MG, QD
     Route: 041
     Dates: start: 20210330, end: 20210330
  4. MOVICOL PLAIN [Concomitant]
     Active Substance: POLYETHYLENE GLYCOL 3350\POTASSIUM CHLORIDE\SODIUM BICARBONATE\SODIUM CHLORIDE
  5. OXYCODONE [Concomitant]
     Active Substance: OXYCODONE
  6. SALICYLATES NOS [Concomitant]
     Active Substance: UNSPECIFIED INGREDIENT
  7. VALSARTAN. [Concomitant]
     Active Substance: VALSARTAN
     Dosage: UNK
  8. PARACETAMOL [Concomitant]
     Active Substance: ACETAMINOPHEN
  9. CALCIUM LEVOFOLINATE [Suspect]
     Active Substance: LEVOLEUCOVORIN CALCIUM
     Indication: SQUAMOUS CELL CARCINOMA
     Dosage: 270 MG, QD
     Route: 041
     Dates: start: 20210330, end: 20210330
  10. NEBIVOLOL. [Concomitant]
     Active Substance: NEBIVOLOL
  11. CISPLATIN. [Suspect]
     Active Substance: CISPLATIN
     Indication: SQUAMOUS CELL CARCINOMA
     Dosage: 54 MG, QD
     Route: 041
     Dates: start: 20210330, end: 20210330
  12. CHLORDIAZEPOXIDE. [Suspect]
     Active Substance: CHLORDIAZEPOXIDE
     Indication: SQUAMOUS CELL CARCINOMA
     Dosage: 80 MG, QD
     Route: 041
     Dates: start: 20210330, end: 20210330

REACTIONS (1)
  - Renal tubular disorder [Not Recovered/Not Resolved]

NARRATIVE: CASE EVENT DATE: 20210409
